FAERS Safety Report 8621543-0 (Version None)
Quarter: 2012Q3

REPORT INFORMATION
  Report Type: 
  Country: None (occurrence: None)
  Receive Date: 20120824
  Receipt Date: 20120817
  Transmission Date: 20120928
  Serious: Yes (Other)
  Sender: FDA-Public Use
  Company Number: CHPA2012US018395

PATIENT
  Age: 37 Year
  Sex: Female

DRUGS (4)
  1. ANXIOLYTICS [Concomitant]
     Indication: ANXIETY
  2. VOLTAREN [Suspect]
     Indication: INFLAMMATION
     Dosage: 4 G, BID
     Route: 061
     Dates: start: 20110101, end: 20120801
  3. CARISOPRODOL [Concomitant]
     Indication: INJURY
     Dosage: 350 MG, QID
  4. ANALGESICS,OTHER [Concomitant]
     Indication: PAIN

REACTIONS (8)
  - EMPHYSEMA [None]
  - WRONG TECHNIQUE IN DRUG USAGE PROCESS [None]
  - EXPIRED DRUG ADMINISTERED [None]
  - DRUG ADMINISTERED AT INAPPROPRIATE SITE [None]
  - OFF LABEL USE [None]
  - THERAPEUTIC RESPONSE UNEXPECTED [None]
  - CHRONIC OBSTRUCTIVE PULMONARY DISEASE [None]
  - BRONCHITIS CHRONIC [None]
